FAERS Safety Report 20624871 (Version 1)
Quarter: 2022Q1

REPORT INFORMATION
  Report Type: Report from Study
  Country: BE (occurrence: BE)
  Receive Date: 20220323
  Receipt Date: 20220323
  Transmission Date: 20220423
  Serious: Yes (Hospitalization)
  Sender: FDA-Public Use
  Company Number: BE-ABBVIE-22K-013-4273867-00

PATIENT
  Sex: Female
  Weight: 65 kg

DRUGS (12)
  1. CARBIDOPA\LEVODOPA [Suspect]
     Active Substance: CARBIDOPA\LEVODOPA
     Indication: Parkinson^s disease
     Route: 050
     Dates: start: 20190521
  2. CARBIDOPA\LEVODOPA [Suspect]
     Active Substance: CARBIDOPA\LEVODOPA
     Dosage: MD 6.0 ML; CD 2.8 ML/HR DURING 16 HOURS; ED 2.0 ML
     Route: 050
     Dates: start: 20210803, end: 20210922
  3. CARBIDOPA\LEVODOPA [Suspect]
     Active Substance: CARBIDOPA\LEVODOPA
     Dosage: MD 5.5 ML; CD 2.5 ML/HR DURING 16 HOURS; ED 1.5 ML
     Route: 050
     Dates: start: 20210922
  4. ASPIRIN [Concomitant]
     Active Substance: ASPIRIN
     Indication: Product used for unknown indication
     Dosage: AT 8.00 HOUR
  5. XADAGO [Concomitant]
     Active Substance: SAFINAMIDE MESYLATE
     Indication: Product used for unknown indication
     Dosage: AT 8.00 HOUR
  6. SERETIDE [Concomitant]
     Active Substance: FLUTICASONE PROPIONATE\SALMETEROL XINAFOATE
     Indication: Product used for unknown indication
     Dosage: PUFFS, ONCE DAILY
  7. REQUIP [Concomitant]
     Active Substance: ROPINIROLE HYDROCHLORIDE
     Indication: Product used for unknown indication
     Dosage: AT 8.00 HOUR
  8. BENSERAZIDE\LEVODOPA [Concomitant]
     Active Substance: BENSERAZIDE\LEVODOPA
     Indication: Parkinson^s disease
     Dosage: HALF A TABLET AT 7.00; 10.00; 19.00; AND 21.00 HOUR
  9. BENSERAZIDE\LEVODOPA [Concomitant]
     Active Substance: BENSERAZIDE\LEVODOPA
     Dosage: A QUARTER TABLET AT 13.00 AND 17.00 HOUR
  10. BENSERAZIDE\LEVODOPA [Concomitant]
     Active Substance: BENSERAZIDE\LEVODOPA
     Dosage: HALF A TABLET IF NEEDED IN THE EVENING
     Route: 048
  11. PANTOMED [Concomitant]
     Indication: Product used for unknown indication
  12. INDAPAMIDE\PERINDOPRIL [Concomitant]
     Active Substance: INDAPAMIDE\PERINDOPRIL
     Indication: Product used for unknown indication
     Dosage: AT 8.00 HOUR

REACTIONS (4)
  - Delirium [Unknown]
  - Confusional state [Unknown]
  - Unintentional medical device removal [Recovered/Resolved]
  - Mental disorder [Unknown]
